FAERS Safety Report 7506821-0 (Version None)
Quarter: 2011Q2

REPORT INFORMATION
  Report Type: 
  Country: None (occurrence: None)
  Receive Date: 20110526
  Receipt Date: 20110517
  Transmission Date: 20111010
  Serious: Yes (Death)
  Sender: FDA-Public Use
  Company Number: A0929035A

PATIENT
  Age: 89 Year
  Sex: Male

DRUGS (3)
  1. SPIRIVA [Suspect]
  2. ROCEPHIN [Suspect]
  3. ADVAIR DISKUS 100/50 [Suspect]
     Indication: CHRONIC OBSTRUCTIVE PULMONARY DISEASE

REACTIONS (1)
  - DEATH [None]
